FAERS Safety Report 22214625 (Version 2)
Quarter: 2023Q2

REPORT INFORMATION
  Report Type: Report from Study
  Country: US (occurrence: US)
  Receive Date: 20230415
  Receipt Date: 20230421
  Transmission Date: 20230721
  Serious: No
  Sender: FDA-Public Use
  Company Number: US-002147023-NVSC2023US086536

PATIENT
  Sex: Female
  Weight: 87.54 kg

DRUGS (1)
  1. ENTRESTO [Suspect]
     Active Substance: SACUBITRIL\VALSARTAN
     Indication: Cardiac failure
     Dosage: 2 DOSAGE FORM, BID (TAKING 4 PILLS A DAY)
     Route: 048

REACTIONS (2)
  - Dysphemia [Unknown]
  - Nervousness [Unknown]
